FAERS Safety Report 21242660 (Version 1)
Quarter: 2022Q3

REPORT INFORMATION
  Report Type: Report from Study
  Country: CA (occurrence: CA)
  Receive Date: 20220823
  Receipt Date: 20220823
  Transmission Date: 20221026
  Serious: Yes (Other)
  Sender: FDA-Public Use
  Company Number: CA-BAUSCH-BL-2022-008956

PATIENT
  Sex: Female

DRUGS (2)
  1. CONTRAVE [Suspect]
     Active Substance: BUPROPION HYDROCHLORIDE\NALTREXONE HYDROCHLORIDE
     Indication: Weight control
     Dosage: 90/8MG, 1 TAB Q AM
     Route: 048
     Dates: start: 20220327, end: 20220402
  2. CONTRAVE [Suspect]
     Active Substance: BUPROPION HYDROCHLORIDE\NALTREXONE HYDROCHLORIDE
     Dosage: 90/8MG, 1 TAB Q AM 1 TAB Q PM
     Route: 048
     Dates: start: 20220403, end: 20220713

REACTIONS (10)
  - Eye operation [Recovering/Resolving]
  - Taste disorder [Not Recovered/Not Resolved]
  - COVID-19 [Recovering/Resolving]
  - Stress [Unknown]
  - Abdominal pain upper [Not Recovered/Not Resolved]
  - Nausea [Not Recovered/Not Resolved]
  - Diarrhoea [Not Recovered/Not Resolved]
  - Disease recurrence [Not Recovered/Not Resolved]
  - Constipation [Recovered/Resolved]
  - Product use issue [Unknown]

NARRATIVE: CASE EVENT DATE: 20220101
